FAERS Safety Report 7351980-6 (Version None)
Quarter: 2011Q1

REPORT INFORMATION
  Report Type: 
  Country: None (occurrence: None)
  Receive Date: 20110304
  Receipt Date: 20110217
  Transmission Date: 20110831
  Serious: Yes (Hospitalization)
  Sender: FDA-Public Use
  Company Number: DSJ-2011-01699

PATIENT
  Sex: Male
  Weight: 61.6 kg

DRUGS (10)
  1. LASIX [Concomitant]
  2. LORELCO ( PROBUCOL ) (PROBUCOL) [Concomitant]
  3. SIGMART (NICORANDIL)(NICORANDIL) [Concomitant]
  4. ALDACTONE A (SPIRONOLACTONE ) (SPIRONOLACTONE ) [Concomitant]
  5. NU-LOTAN(LOSARTAN POTASSIUM) (LOSARTAN POTASSIUM) [Concomitant]
  6. OLMETEC (OLMESARTAN MEDOXOMIL) (TABLET) (OLMESARTAN MEDOXOMIL) [Suspect]
     Indication: ESSENTIAL HYPERTENSION
     Dosage: 20 MG,PER ORAL
     Route: 048
     Dates: start: 20100930
  7. GA5TER D (FAMOTIDINE)(FAMOTIDINE) [Concomitant]
  8. CHOLEBINE(COLESTILAN)(COLESTILAN) [Concomitant]
  9. ALOSITOL (ALLOPURINOL)(ALLOPURINOL) [Concomitant]
  10. NIFEDIPINE [Concomitant]

REACTIONS (4)
  - CARDIAC FAILURE [None]
  - BLOOD PRESSURE INCREASED [None]
  - RENAL ARTERY STENOSIS [None]
  - CARDIAC FAILURE ACUTE [None]
